FAERS Safety Report 6990072-2 (Version None)
Quarter: 2010Q3

REPORT INFORMATION
  Report Type: 
  Country: None (occurrence: None)
  Receive Date: 20100916
  Receipt Date: 20100527
  Transmission Date: 20110219
  Serious: Yes (Other)
  Sender: FDA-Public Use
  Company Number: US-PFIZER INC-2009220226

PATIENT
  Sex: Female
  Weight: 88.435 kg

DRUGS (9)
  1. LYRICA [Suspect]
     Indication: BACK PAIN
     Dosage: 50 MG, 2X/DAY
     Route: 048
     Dates: start: 20081111, end: 20081101
  2. LYRICA [Suspect]
     Indication: INTERVERTEBRAL DISC PROTRUSION
  3. TOPROL-XL [Concomitant]
     Indication: HYPERTENSION
     Dosage: 50 MG, 1X/DAY
     Route: 048
  4. VICODIN [Concomitant]
     Indication: PAIN
     Dosage: UNK MG, AS NEEDED
     Route: 048
  5. TOPAMAX [Concomitant]
     Dosage: UNK MG, UNK
     Route: 048
  6. ZANAFLEX [Concomitant]
     Indication: BACK PAIN
     Dosage: UNK MG, UNK
     Route: 048
  7. DICLOFENAC [Concomitant]
     Dosage: UNK MG, UNK
     Route: 048
  8. LISINOPRIL AND HYDROCHLOROTHIAZIDE [Concomitant]
     Indication: HYPERTENSION
     Dosage: 20/25
     Route: 048
  9. ALPRAZOLAM [Concomitant]
     Dosage: UNK

REACTIONS (6)
  - ANAPHYLACTIC SHOCK [None]
  - DYSPNOEA [None]
  - HYPOAESTHESIA ORAL [None]
  - LIP SWELLING [None]
  - PARAESTHESIA [None]
  - PHARYNGEAL OEDEMA [None]
